FAERS Safety Report 5599974-5 (Version None)
Quarter: 2008Q1

REPORT INFORMATION
  Report Type: 
  Country: None (occurrence: None)
  Receive Date: 20080123
  Receipt Date: 20080111
  Transmission Date: 20080703
  Serious: Yes (Death, Other)
  Sender: FDA-Public Use
  Company Number: US-TYCO HEALTHCARE/MALLINCKRODT-T200800038

PATIENT

DRUGS (1)
  1. RESTORIL [Suspect]
     Dosage: 15 MG, ONE CAPULE AT BEDTIME
     Route: 048
     Dates: end: 20070701

REACTIONS (4)
  - FALL [None]
  - HIP FRACTURE [None]
  - MYOCARDIAL INFARCTION [None]
  - PROCEDURAL COMPLICATION [None]
